FAERS Safety Report 13759378 (Version 1)
Quarter: 2017Q3

REPORT INFORMATION
  Report Type: Spontaneous
  Country: US (occurrence: US)
  Receive Date: 20170717
  Receipt Date: 20170717
  Transmission Date: 20171127
  Serious: No
  Sender: FDA-Public Use
  Company Number: None

PATIENT
  Age: 68 Year
  Sex: Female

DRUGS (1)
  1. IBRANCE [Suspect]
     Active Substance: PALBOCICLIB
     Dosage: 125MG Q D X 21 DAYS ORAL
     Route: 048

REACTIONS (2)
  - Diarrhoea [None]
  - Acne [None]

NARRATIVE: CASE EVENT DATE: 20170713
